FAERS Safety Report 21246918 (Version 3)
Quarter: 2022Q3

REPORT INFORMATION
  Report Type: Report from Study
  Country: US (occurrence: None)
  Receive Date: 20220824
  Receipt Date: 20220913
  Transmission Date: 20221027
  Serious: Yes (Other)
  Sender: FDA-Public Use
  Company Number: US-ROCHE-3164482

PATIENT
  Age: 67 Year
  Sex: Female
  Weight: 50.8 kg

DRUGS (20)
  1. PERTUZUMAB [Suspect]
     Active Substance: PERTUZUMAB
     Indication: HER2 positive breast cancer
     Dosage: DOSE OF LAST DOSE PRIOR TO ADVERSE EVENT: 29/APR/2013
     Route: 042
     Dates: start: 20120503
  2. TRASTUZUMAB [Suspect]
     Active Substance: TRASTUZUMAB
     Indication: HER2 positive breast cancer
     Dosage: ON 29/APR/2013 MOST RECENT DOSE OF TRASTUZUMAB PRIOR TO SAE.
     Route: 042
     Dates: start: 20120503
  3. CARBOPLATIN [Suspect]
     Active Substance: CARBOPLATIN
     Indication: HER2 positive breast cancer
     Dosage: DOSE OF LAST DOSE PRIOR TO ADVERSE EVENT: 07/SEP/2012
     Route: 042
     Dates: start: 20120503
  4. DOCETAXEL [Suspect]
     Active Substance: DOCETAXEL
     Indication: HER2 positive breast cancer
     Route: 042
     Dates: start: 20120503, end: 20120907
  5. COMPAZINE [Concomitant]
     Active Substance: PROCHLORPERAZINE MALEATE
     Dates: start: 20120503, end: 20211015
  6. METHYLPREDNISOLONE [Concomitant]
     Active Substance: METHYLPREDNISOLONE
     Dates: start: 20141013, end: 20220727
  7. SERTRALINE HYDROCHLORIDE [Concomitant]
     Active Substance: SERTRALINE HYDROCHLORIDE
     Dates: start: 20120423
  8. ESTRADIOL [Concomitant]
     Active Substance: ESTRADIOL
     Dates: start: 20190417
  9. ZOLPIDEM TARTRATE [Concomitant]
     Active Substance: ZOLPIDEM TARTRATE
     Dates: start: 20120524, end: 20220420
  10. LETROZOLE [Concomitant]
     Active Substance: LETROZOLE
     Dates: start: 20131216, end: 20220103
  11. LORAZEPAM [Concomitant]
     Active Substance: LORAZEPAM
     Dates: start: 20121224
  12. MAGNESIUM [Concomitant]
     Active Substance: MAGNESIUM
     Dates: start: 20210809
  13. MAGNESIUM [Concomitant]
     Active Substance: MAGNESIUM
     Dates: start: 20130809
  14. MELOXICAM [Concomitant]
     Active Substance: MELOXICAM
     Dates: start: 20120423
  15. MIRTAZAPINE [Concomitant]
     Active Substance: MIRTAZAPINE
     Dates: start: 20121221
  16. PRAVASTATIN [Concomitant]
     Active Substance: PRAVASTATIN
     Dates: start: 20120423
  17. TYLENOL EXTRA STRENGTH [Concomitant]
     Active Substance: ACETAMINOPHEN
     Dates: start: 20120423
  18. VITAMIN B6 [Concomitant]
     Active Substance: PYRIDOXINE HYDROCHLORIDE
     Dates: start: 20120423, end: 20220420
  19. ASCORBIC ACID [Concomitant]
     Active Substance: ASCORBIC ACID
     Dates: start: 20120423
  20. CHONDROITIN SULFATE (BOVINE)\GLUCOSAMINE HYDROCHLORIDE [Concomitant]
     Active Substance: CHONDROITIN SULFATE (BOVINE)\GLUCOSAMINE HYDROCHLORIDE
     Dosage: 375-300 MG, TWO TABLETS DAILY
     Dates: start: 20120423

REACTIONS (1)
  - Colon cancer [Recovered/Resolved]

NARRATIVE: CASE EVENT DATE: 20210127
